FAERS Safety Report 14668056 (Version 1)
Quarter: 2018Q1

REPORT INFORMATION
  Report Type: Spontaneous
  Country: GB (occurrence: GB)
  Receive Date: 20180322
  Receipt Date: 20180322
  Transmission Date: 20180509
  Serious: Yes (Hospitalization)
  Sender: FDA-Public Use
  Company Number: GB-AUROBINDO-AUR-APL-2018-012727

PATIENT
  Age: 30 Year
  Sex: Male
  Weight: 83 kg

DRUGS (7)
  1. CLOBAZAM [Suspect]
     Active Substance: CLOBAZAM
     Indication: EPILEPSY
     Dosage: 20 MILLIGRAM
     Route: 048
     Dates: start: 20000101
  2. BACLOFEN. [Concomitant]
     Active Substance: BACLOFEN
     Indication: MYOCLONUS
  3. BISACODYL. [Concomitant]
     Active Substance: BISACODYL
     Indication: CONSTIPATION
     Dosage: ()AS NECESSARY
  4. KEPPRA [Concomitant]
     Active Substance: LEVETIRACETAM
     Indication: EPILEPSY
     Dosage: 1250MG MORNING AND 1000MG NIGHT
  5. MELATONIN [Concomitant]
     Active Substance: MELATONIN
     Indication: INSOMNIA
     Dosage: 9 MILLIGRAM NIGHT
  6. FLUCONAZOLE. [Suspect]
     Active Substance: FLUCONAZOLE
     Indication: ORAL CANDIDIASIS
     Dosage: 50 MILLIGRAM
     Route: 048
     Dates: start: 20171127, end: 20171213
  7. LAMOTRIGINE. [Concomitant]
     Active Substance: LAMOTRIGINE
     Indication: EPILEPSY
     Dosage: 400 MILLIGRAM

REACTIONS (3)
  - Sedation complication [Recovered/Resolved]
  - Drug interaction [Recovered/Resolved]
  - Drug prescribing error [Unknown]

NARRATIVE: CASE EVENT DATE: 20171125
